FAERS Safety Report 9264247 (Version 1)
Quarter: 2013Q2

REPORT INFORMATION
  Report Type: Report from Study
  Country: US (occurrence: US)
  Receive Date: 20130430
  Receipt Date: 20130430
  Transmission Date: 20140414
  Serious: Yes (Other)
  Sender: FDA-Public Use
  Company Number: US-US-EMD SERONO, INC.-7207493

PATIENT
  Age: 68 Year
  Sex: Female

DRUGS (3)
  1. REBIF [Suspect]
     Indication: PRODUCT USED FOR UNKNOWN INDICATION
     Route: 058
     Dates: start: 20120709
  2. QVAR [Concomitant]
  3. ALBUTEROL                          /00139501/ [Concomitant]

REACTIONS (2)
  - Bronchopneumonia [Recovering/Resolving]
  - Sinusitis [Recovering/Resolving]
